FAERS Safety Report 12742639 (Version 1)
Quarter: 2016Q3

REPORT INFORMATION
  Report Type: Spontaneous
  Country: JP (occurrence: JP)
  Receive Date: 20160914
  Receipt Date: 20160914
  Transmission Date: 20161109
  Serious: Yes (Other)
  Sender: FDA-Public Use
  Company Number: JP-009507513-1601JPN006823

PATIENT
  Sex: Female

DRUGS (3)
  1. EURODIN (ESTAZOLAM) [Concomitant]
     Dosage: DAILY DOSAGE UNKNOWN
     Route: 048
  2. ZOLPIDEM TARTRATE. [Concomitant]
     Active Substance: ZOLPIDEM TARTRATE
     Dosage: DAILY DOSAGE UNKNOWN
     Route: 048
  3. BELSOMRA [Suspect]
     Active Substance: SUVOREXANT
     Dosage: DAILY DOSAGE UNKNOWN
     Route: 048

REACTIONS (8)
  - Musculoskeletal stiffness [Unknown]
  - Somnolence [Unknown]
  - Adverse event [Unknown]
  - Mental impairment [Unknown]
  - Tooth disorder [Unknown]
  - Facial spasm [Unknown]
  - Disturbance in attention [Unknown]
  - Tremor [Unknown]
